FAERS Safety Report 8960759 (Version 1)
Quarter: 2012Q4

REPORT INFORMATION
  Report Type: 
  Country: MX (occurrence: MX)
  Receive Date: 20121213
  Receipt Date: 20121213
  Transmission Date: 20130627
  Serious: Yes (Other)
  Sender: FDA-Public Use
  Company Number: MX-009507513-1212USA004284

PATIENT
  Age: 32 Year
  Sex: Female

DRUGS (1)
  1. IMPLANON [Suspect]
     Dosage: UNK
     Dates: start: 2009, end: 2010

REACTIONS (2)
  - Abnormal behaviour [Recovering/Resolving]
  - Emotional disorder [Recovering/Resolving]
